FAERS Safety Report 12847823 (Version 2)
Quarter: 2016Q4

REPORT INFORMATION
  Report Type: Spontaneous
  Country: US (occurrence: US)
  Receive Date: 20161014
  Receipt Date: 20161118
  Transmission Date: 20170207
  Serious: No
  Sender: FDA-Public Use
  Company Number: US-JNJFOC-20160912987

PATIENT
  Sex: Female

DRUGS (2)
  1. CHILDRENS TYLENOL [Suspect]
     Active Substance: ACETAMINOPHEN
     Indication: HEADACHE
     Route: 048
  2. CHILDRENS TYLENOL [Suspect]
     Active Substance: ACETAMINOPHEN
     Indication: SURGERY
     Route: 048

REACTIONS (5)
  - Intentional product use issue [Unknown]
  - Drug administered to patient of inappropriate age [Unknown]
  - Intentional product misuse [Unknown]
  - Product physical issue [Unknown]
  - Therapeutic response unexpected [Unknown]
